FAERS Safety Report 14738663 (Version 2)
Quarter: 2018Q2

REPORT INFORMATION
  Report Type: Not Available
  Country: SE (occurrence: GB)
  Receive Date: 20180409
  Receipt Date: 20180409
  Transmission Date: 20180711
  Serious: Yes (Other)
  Sender: FDA-Public Use
  Company Number: SE-ANIPHARMA-2018-UK-000029

PATIENT
  Sex: Female

DRUGS (7)
  1. HYOSCINE [Suspect]
     Active Substance: SCOPOLAMINE
     Dosage: 300UG, TID
  2. VALPROATE SODIUM. [Suspect]
     Active Substance: VALPROATE SODIUM
     Dosage: 1000 MG, PM, DAILY
     Route: 048
  3. FISH OIL [Suspect]
     Active Substance: FISH OIL
  4. ANASTROZOLE. [Suspect]
     Active Substance: ANASTROZOLE
     Dosage: 1 MG
     Route: 048
  5. CLOZARIL [Suspect]
     Active Substance: CLOZAPINE
  6. SULPIRIDE [Suspect]
     Active Substance: SULPIRIDE
     Dosage: 400 MG, BID
  7. ZYRTEC [Suspect]
     Active Substance: CETIRIZINE HYDROCHLORIDE
     Dosage: 10 MG

REACTIONS (2)
  - Infectious mononucleosis [Unknown]
  - Breast cancer [Unknown]

NARRATIVE: CASE EVENT DATE: 2017
